FAERS Safety Report 6302444-X (Version None)
Quarter: 2009Q3

REPORT INFORMATION
  Report Type: 
  Country: None (occurrence: None)
  Receive Date: 20090810
  Receipt Date: 20090729
  Transmission Date: 20100115
  Serious: Yes (Other)
  Sender: FDA-Public Use
  Company Number: RU-ROCHE-646543

PATIENT
  Age: 69 Year
  Sex: Female

DRUGS (2)
  1. BONIVA [Suspect]
     Indication: OSTEOPOROSIS
     Route: 048
     Dates: start: 20090701
  2. CAFFETIN [Concomitant]

REACTIONS (6)
  - ARTHRALGIA [None]
  - FACE OEDEMA [None]
  - MUSCULOSKELETAL DISCOMFORT [None]
  - PAIN [None]
  - PYREXIA [None]
  - URTICARIA [None]
